FAERS Safety Report 9367028 (Version 1)
Quarter: 2013Q2

REPORT INFORMATION
  Report Type: Spontaneous
  Country: US (occurrence: US)
  Receive Date: 20130625
  Receipt Date: 20130625
  Transmission Date: 20140414
  Serious: Yes (Hospitalization, Other)
  Sender: FDA-Public Use
  Company Number: US-BAXTER-2013BAX022769

PATIENT
  Sex: Female

DRUGS (4)
  1. DIANEAL PD2 [Suspect]
     Indication: PERITONEAL DIALYSIS
     Route: 033
     Dates: start: 20120312
  2. DIANEAL PD2 [Suspect]
     Route: 033
     Dates: start: 20120312
  3. DIANEAL PD2 [Suspect]
     Indication: PERITONEAL DIALYSIS
     Route: 033
     Dates: start: 20120312
  4. DIANEAL PD2 [Suspect]
     Route: 033
     Dates: start: 20120312

REACTIONS (2)
  - Catheter site pain [Recovered/Resolved]
  - Procedural pain [Unknown]
